FAERS Safety Report 16281778 (Version 4)
Quarter: 2019Q3

REPORT INFORMATION
  Report Type: Report from Study
  Country: US (occurrence: US)
  Receive Date: 20190507
  Receipt Date: 20190926
  Transmission Date: 20191004
  Serious: Yes (Hospitalization, Other)
  Sender: FDA-Public Use
  Company Number: US-B.I. PHARMACEUTICALS,INC./RIDGEFIELD-2018-BI-016568

PATIENT
  Age: 87 Year
  Sex: Male

DRUGS (4)
  1. AMLODIPINE [Concomitant]
     Active Substance: AMLODIPINE BESYLATE
     Indication: PRODUCT USED FOR UNKNOWN INDICATION
     Route: 065
  2. OFEV [Suspect]
     Active Substance: NINTEDANIB
     Route: 048
     Dates: start: 20190501
  3. OFEV [Suspect]
     Active Substance: NINTEDANIB
     Indication: IDIOPATHIC PULMONARY FIBROSIS
     Route: 048
     Dates: start: 20180308, end: 20190430
  4. OFEV [Suspect]
     Active Substance: NINTEDANIB
     Route: 048

REACTIONS (26)
  - Blood urine present [Recovered/Resolved]
  - Dyspepsia [Unknown]
  - Blood urine [Unknown]
  - Diarrhoea [Unknown]
  - Chest discomfort [Unknown]
  - Abdominal discomfort [Unknown]
  - Dyspnoea [Unknown]
  - Diarrhoea [Not Recovered/Not Resolved]
  - Dyspepsia [Recovered/Resolved]
  - Fatigue [Unknown]
  - Eye pain [Recovered/Resolved]
  - Oxygen saturation decreased [Unknown]
  - Syncope [Recovered/Resolved]
  - Dizziness [Unknown]
  - Dyspnoea exertional [Unknown]
  - Fall [Recovered/Resolved]
  - Blood pressure fluctuation [Unknown]
  - Anaemia [Unknown]
  - Diarrhoea [Recovered/Resolved]
  - Blood pressure increased [Recovering/Resolving]
  - Weight decreased [Unknown]
  - Prostate cancer [Not Recovered/Not Resolved]
  - Oxygen saturation abnormal [Unknown]
  - Cough [Unknown]
  - Weight decreased [Recovered/Resolved]
  - Productive cough [Unknown]

NARRATIVE: CASE EVENT DATE: 2018
